FAERS Safety Report 16796664 (Version 8)
Quarter: 2019Q4

REPORT INFORMATION
  Report Type: Report from Study
  Country: DE (occurrence: DE)
  Receive Date: 20190911
  Receipt Date: 20191223
  Transmission Date: 20200122
  Serious: Yes (Hospitalization)
  Sender: FDA-Public Use
  Company Number: PHHO2019DE008880

PATIENT
  Age: 52 Year
  Sex: Female
  Weight: 53.2 kg

DRUGS (5)
  1. SECUKINUMAB. [Suspect]
     Active Substance: SECUKINUMAB
     Indication: HIDRADENITIS
     Dosage: 300 MG, Q2W
     Route: 058
     Dates: start: 20190515, end: 20190821
  2. OCTENISAN WASH LOTION [Concomitant]
     Indication: HIDRADENITIS
     Route: 065
     Dates: start: 20190415
  3. FERROSANOL [Concomitant]
     Active Substance: FERROUS GLUCONATE
     Indication: ANAEMIA
     Route: 065
     Dates: start: 20100101
  4. CETRIZIN TBL [Concomitant]
     Indication: RHINITIS ALLERGIC
     Dosage: UNK
     Route: 065
     Dates: start: 19990101
  5. FERROSANOL [Concomitant]
     Active Substance: FERROUS GLUCONATE
     Indication: ANAEMIA
     Dosage: UNK
     Route: 065
     Dates: start: 20100101

REACTIONS (2)
  - Urinary tract infection [Recovered/Resolved]
  - Pelvi-ureteric obstruction [Recovered/Resolved]

NARRATIVE: CASE EVENT DATE: 20190902
